FAERS Safety Report 12943998 (Version 1)
Quarter: 2016Q4

REPORT INFORMATION
  Report Type: Spontaneous
  Country: US (occurrence: US)
  Receive Date: 20161115
  Receipt Date: 20161115
  Transmission Date: 20170207
  Serious: No
  Sender: FDA-Public Use
  Company Number: US-ROCHE-1732823

PATIENT
  Age: 12 Year
  Sex: Female
  Weight: 33.14 kg

DRUGS (1)
  1. TAMIFLU [Suspect]
     Active Substance: OSELTAMIVIR PHOSPHATE
     Indication: INFLUENZA
     Dosage: 1 CAPSULE TWICE DAILY
     Route: 065
     Dates: start: 20160327, end: 20160327

REACTIONS (5)
  - Tremor [Recovered/Resolved]
  - Abdominal pain [Recovered/Resolved]
  - Nausea [Recovered/Resolved]
  - Pallor [Recovering/Resolving]
  - Vomiting [Recovered/Resolved]
